FAERS Safety Report 18113404 (Version 9)
Quarter: 2021Q2

REPORT INFORMATION
  Report Type: Spontaneous
  Country: US (occurrence: US)
  Receive Date: 20200805
  Receipt Date: 20210514
  Transmission Date: 20210717
  Serious: No
  Sender: FDA-Public Use
  Company Number: US-PFIZER INC-2020295052

PATIENT
  Age: 71 Year
  Sex: Female
  Weight: 83.91 kg

DRUGS (3)
  1. DOFETILIDE. [Suspect]
     Active Substance: DOFETILIDE
     Indication: ARRHYTHMIA
     Dosage: UNK
  2. DOFETILIDE. [Suspect]
     Active Substance: DOFETILIDE
     Indication: CARDIAC DISORDER
  3. DOFETILIDE. [Suspect]
     Active Substance: DOFETILIDE
     Indication: ATRIAL FIBRILLATION

REACTIONS (1)
  - Drug ineffective [Unknown]
